FAERS Safety Report 13650363 (Version 2)
Quarter: 2017Q2

REPORT INFORMATION
  Report Type: Spontaneous
  Country: JP (occurrence: JP)
  Receive Date: 20170614
  Receipt Date: 20170619
  Transmission Date: 20170830
  Serious: No
  Sender: FDA-Public Use
  Company Number: JP-ROCHE-1950137

PATIENT
  Age: 48 Year
  Sex: Male

DRUGS (2)
  1. INSULIN [Concomitant]
     Active Substance: INSULIN NOS
     Indication: DIABETES MELLITUS
     Route: 065
     Dates: start: 1996
  2. LUCENTIS [Suspect]
     Active Substance: RANIBIZUMAB
     Indication: DIABETIC RETINAL OEDEMA
     Route: 031
     Dates: start: 20170315

REACTIONS (3)
  - Visual acuity reduced [Unknown]
  - Diabetic retinal oedema [Unknown]
  - Disease progression [Unknown]

NARRATIVE: CASE EVENT DATE: 20170316
